FAERS Safety Report 16410992 (Version 2)
Quarter: 2019Q2

REPORT INFORMATION
  Report Type: Spontaneous
  Country: US (occurrence: US)
  Receive Date: 20190610
  Receipt Date: 20190619
  Transmission Date: 20190711
  Serious: Yes (Death)
  Sender: FDA-Public Use
  Company Number: US-LUNDBECK-DKLU2079933

PATIENT
  Sex: Male
  Weight: 42 kg

DRUGS (1)
  1. SABRIL [Suspect]
     Active Substance: VIGABATRIN
     Indication: IDIOPATHIC GENERALISED EPILEPSY
     Route: 048
     Dates: start: 20170120

REACTIONS (2)
  - Seizure [Fatal]
  - Acute respiratory distress syndrome [Fatal]
